FAERS Safety Report 13996769 (Version 2)
Quarter: 2019Q4

REPORT INFORMATION
  Report Type: Spontaneous
  Country: GB (occurrence: GB)
  Receive Date: 20170921
  Receipt Date: 20191224
  Transmission Date: 20200122
  Serious: Yes (Congenital Anomaly, Other)
  Sender: FDA-Public Use
  Company Number: GB-TEVA-807755ACC

PATIENT

DRUGS (1)
  1. VENLAFAXINE [Suspect]
     Active Substance: VENLAFAXINE HYDROCHLORIDE
     Indication: DEPRESSION
     Route: 064
     Dates: start: 2015

REACTIONS (2)
  - Foetal exposure during pregnancy [Unknown]
  - Congenital cystic lung [Not Recovered/Not Resolved]
